FAERS Safety Report 6407475-7 (Version None)
Quarter: 2009Q4

REPORT INFORMATION
  Report Type: 
  Country: None (occurrence: None)
  Receive Date: 20091020
  Receipt Date: 20091019
  Transmission Date: 20100525
  Serious: Yes (Hospitalization, Other)
  Sender: FDA-Public Use
  Company Number: US-TEVA-212756USA

PATIENT
  Age: 36 Year
  Sex: Female

DRUGS (5)
  1. CARBOPLATIN [Suspect]
     Indication: SQUAMOUS CELL CARCINOMA
     Dosage: SEVERAL CYCLES
  2. PACLITAXEL [Suspect]
     Indication: SQUAMOUS CELL CARCINOMA
     Dosage: SEVERAL CYCLES
  3. PREDNISOLONE [Concomitant]
     Indication: IMMUNOSUPPRESSION
  4. TACROLIMUS [Concomitant]
     Indication: IMMUNOSUPPRESSION
  5. SIROLIMUS [Concomitant]
     Indication: IMMUNOSUPPRESSION

REACTIONS (1)
  - LIVER TRANSPLANT REJECTION [None]
